FAERS Safety Report 17308743 (Version 2)
Quarter: 2022Q2

REPORT INFORMATION
  Report Type: Spontaneous
  Country: US (occurrence: US)
  Receive Date: 20200123
  Receipt Date: 20220414
  Transmission Date: 20220720
  Serious: Yes (Death, Life-Threatening, Hospitalization, Other)
  Sender: FDA-Public Use
  Company Number: US-SUN PHARMACEUTICAL INDUSTRIES LTD-2020R1-233632

PATIENT
  Age: 32 Year
  Sex: Male

DRUGS (1)
  1. BUPROPION [Suspect]
     Active Substance: BUPROPION
     Indication: Product used for unknown indication
     Dosage: UNK, (CONSUMING AN UNKNOWN QUANTITY OF BUPROPION TABLETS)
     Route: 065

REACTIONS (12)
  - Suicide attempt [Fatal]
  - Overdose [Fatal]
  - Toxicity to various agents [Fatal]
  - Cardiogenic shock [Fatal]
  - Acute kidney injury [Unknown]
  - Electrocardiogram QRS complex prolonged [Unknown]
  - Electrocardiogram QT prolonged [Unknown]
  - Congestive cardiomyopathy [Unknown]
  - Hypotension [Unknown]
  - Metabolic acidosis [Unknown]
  - Somnolence [Unknown]
  - Generalised tonic-clonic seizure [Unknown]
